FAERS Safety Report 9780359 (Version 3)
Quarter: 2015Q3

REPORT INFORMATION
  Report Type: Report from Study
  Country: US (occurrence: US)
  Receive Date: 20131224
  Receipt Date: 20150928
  Transmission Date: 20151125
  Serious: Yes (Hospitalization)
  Sender: FDA-Public Use
  Company Number: US-ROCHE-1323436

PATIENT
  Sex: Male

DRUGS (12)
  1. BENICAR [Concomitant]
     Active Substance: OLMESARTAN MEDOXOMIL
  2. POTASSIUM CITRATE. [Concomitant]
     Active Substance: POTASSIUM CITRATE
  3. LUCENTIS [Suspect]
     Active Substance: RANIBIZUMAB
     Indication: NEOVASCULAR AGE-RELATED MACULAR DEGENERATION
     Dosage: RIGHT EYE
     Route: 050
  4. KLONOPIN [Suspect]
     Active Substance: CLONAZEPAM
     Indication: PARKINSON^S DISEASE
     Dosage: BEDTIME
     Route: 065
  5. NORTRIPTYLINE [Concomitant]
     Active Substance: NORTRIPTYLINE
     Indication: PARKINSON^S DISEASE
  6. ZOCOR [Concomitant]
     Active Substance: SIMVASTATIN
     Indication: BLOOD CHOLESTEROL DECREASED
  7. ALLOPURINOL. [Concomitant]
     Active Substance: ALLOPURINOL
     Indication: RENAL DISORDER
     Route: 065
  8. FINASTERIDE. [Concomitant]
     Active Substance: FINASTERIDE
     Indication: PROSTATIC DISORDER
  9. NEXIUM [Concomitant]
     Active Substance: ESOMEPRAZOLE MAGNESIUM
  10. ASPIRIN. [Concomitant]
     Active Substance: ASPIRIN
     Route: 065
  11. EYLEA [Concomitant]
     Active Substance: AFLIBERCEPT
  12. SINEMET [Concomitant]
     Active Substance: CARBIDOPA\LEVODOPA
     Indication: PARKINSON^S DISEASE

REACTIONS (3)
  - Transient ischaemic attack [Recovered/Resolved]
  - Eye irritation [Recovered/Resolved]
  - Ocular hyperaemia [Recovered/Resolved]
